FAERS Safety Report 7367344-5 (Version None)
Quarter: 2011Q1

REPORT INFORMATION
  Report Type: 
  Country: None (occurrence: None)
  Receive Date: 20110311
  Receipt Date: 20110106
  Transmission Date: 20110831
  Serious: Yes (Death, Life-Threatening)
  Sender: FDA-Public Use
  Company Number: 2011SP000908

PATIENT
  Age: 65 Year
  Sex: Female
  Weight: 35.3806 kg

DRUGS (6)
  1. TEMODAL [Suspect]
     Indication: GLIOBLASTOMA
     Dosage: 140 MG;QD;IV
     Route: 042
     Dates: start: 20101028, end: 20101201
  2. LEVETRIACETAM [Concomitant]
  3. LEVOTHYROXINE SODIUM [Concomitant]
  4. NOVAMINSULFON (METAMIZOLE SODIUM) [Suspect]
     Indication: PRODUCT USED FOR UNKNOWN INDICATION
  5. OMEPRAZOLE [Concomitant]
  6. DEXAMETHASONE [Concomitant]

REACTIONS (3)
  - BONE MARROW FAILURE [None]
  - NO THERAPEUTIC RESPONSE [None]
  - SEPSIS [None]
